FAERS Safety Report 6644574-9 (Version None)
Quarter: 2010Q1

REPORT INFORMATION
  Report Type: 
  Country: None (occurrence: None)
  Receive Date: 20100319
  Receipt Date: 20100319
  Transmission Date: 20100710
  Serious: Yes (Life-Threatening)
  Sender: FDA-Public Use
  Company Number: None

PATIENT
  Sex: Male
  Weight: 77.1115 kg

DRUGS (4)
  1. CIALIS [Suspect]
     Indication: POST PROCEDURAL COMPLICATION
     Dosage: 5 MG DAILY P.O.
     Route: 048
     Dates: start: 20100310
  2. CIALIS [Suspect]
     Indication: PROSTATECTOMY
     Dosage: 5 MG DAILY P.O.
     Route: 048
     Dates: start: 20100310
  3. CIALIS [Suspect]
     Indication: POST PROCEDURAL COMPLICATION
     Dosage: 5 MG DAILY P.O.
     Route: 048
     Dates: start: 20100311
  4. CIALIS [Suspect]
     Indication: PROSTATECTOMY
     Dosage: 5 MG DAILY P.O.
     Route: 048
     Dates: start: 20100311

REACTIONS (3)
  - PLEURITIC PAIN [None]
  - PULMONARY EMBOLISM [None]
  - PYREXIA [None]
